FAERS Safety Report 10308147 (Version 1)
Quarter: 2014Q3

REPORT INFORMATION
  Report Type: Spontaneous
  Country: US (occurrence: US)
  Receive Date: 20140716
  Receipt Date: 20140716
  Transmission Date: 20150326
  Serious: Yes (Other)
  Sender: FDA-Public Use
  Company Number: US-ASTRAZENECA-2014SE49709

PATIENT
  Age: 0 Day
  Sex: Male
  Weight: 4.8 kg

DRUGS (5)
  1. SEROQUEL [Suspect]
     Active Substance: QUETIAPINE FUMARATE
     Route: 064
     Dates: start: 20130218
  2. CELEXA [Concomitant]
     Active Substance: CITALOPRAM HYDROBROMIDE
     Indication: DEPRESSION
  3. SEROQUEL [Suspect]
     Active Substance: QUETIAPINE FUMARATE
     Route: 064
  4. Z PAK ANTIBIOTICS [Concomitant]
     Indication: BRONCHITIS
  5. LAMICTAL [Concomitant]
     Active Substance: LAMOTRIGINE
     Indication: PSYCHOTIC DISORDER

REACTIONS (4)
  - Neonatal aspiration [Recovered/Resolved]
  - Contusion [Recovered/Resolved]
  - Shoulder dystocia [Recovered/Resolved]
  - Dyspnoea [Recovered/Resolved]

NARRATIVE: CASE EVENT DATE: 20131224
